FAERS Safety Report 13176580 (Version 3)
Quarter: 2017Q1

REPORT INFORMATION
  Report Type: Spontaneous
  Country: US (occurrence: US)
  Receive Date: 20170201
  Receipt Date: 20170209
  Transmission Date: 20170428
  Serious: Yes (Hospitalization)
  Sender: FDA-Public Use
  Company Number: US-ACTELION-A-US2017-149367

PATIENT
  Age: 74 Year
  Sex: Female
  Weight: 122.45 kg

DRUGS (4)
  1. UPTRAVI [Suspect]
     Active Substance: SELEXIPAG
     Indication: PULMONARY ARTERIAL HYPERTENSION
     Dosage: 400 MCG, BID
     Route: 048
     Dates: start: 20170118
  2. AMLODIPINE [Concomitant]
     Active Substance: AMLODIPINE BESYLATE
  3. LETAIRIS [Concomitant]
     Active Substance: AMBRISENTAN
  4. REVATIO [Concomitant]
     Active Substance: SILDENAFIL CITRATE

REACTIONS (8)
  - Nausea [Unknown]
  - Eye swelling [Unknown]
  - Orthopnoea [Unknown]
  - Blood pressure decreased [Unknown]
  - Dyspnoea [Unknown]
  - Malaise [Unknown]
  - Confusional state [Unknown]
  - Peripheral swelling [Unknown]
